FAERS Safety Report 7260828-X (Version None)
Quarter: 2011Q1

REPORT INFORMATION
  Report Type: 
  Country: None (occurrence: None)
  Receive Date: 20110130
  Receipt Date: 20101111
  Transmission Date: 20110831
  Serious: No
  Sender: FDA-Public Use
  Company Number: US-ABBOTT-10P-163-0685066-00

PATIENT
  Sex: Female
  Weight: 67.192 kg

DRUGS (3)
  1. DEPO SHOT [Concomitant]
     Indication: CONTRACEPTION
  2. HUMIRA [Suspect]
     Indication: PSORIASIS
     Dates: start: 20081101
  3. HUMIRA [Suspect]
     Indication: PSORIASIS

REACTIONS (2)
  - PSORIASIS [None]
  - INJECTION SITE HAEMATOMA [None]
